FAERS Safety Report 20573545 (Version 1)
Quarter: 2022Q1

REPORT INFORMATION
  Report Type: Spontaneous
  Country: JP (occurrence: None)
  Receive Date: 20220309
  Receipt Date: 20220309
  Transmission Date: 20220424
  Serious: Yes (Death, Other)
  Sender: FDA-Public Use
  Company Number: 2022A105099

PATIENT
  Age: 70 Year
  Sex: Male

DRUGS (1)
  1. ZOMIG [Interacting]
     Active Substance: ZOLMITRIPTAN
     Indication: Product used for unknown indication
     Dosage: UNK
     Route: 048

REACTIONS (3)
  - Cerebral ischaemia [Fatal]
  - Brain death [Fatal]
  - Drug interaction [Not Recovered/Not Resolved]
